FAERS Safety Report 24010927 (Version 1)
Quarter: 2024Q2

REPORT INFORMATION
  Report Type: Spontaneous
  Country: PR (occurrence: PR)
  Receive Date: 20240625
  Receipt Date: 20240625
  Transmission Date: 20240715
  Serious: Yes (Hospitalization, Other)
  Sender: FDA-Public Use
  Company Number: PR-PFIZER INC-202400198264

PATIENT
  Age: 37 Year
  Sex: Female
  Weight: 68.04 kg

DRUGS (4)
  1. OXBRYTA [Suspect]
     Active Substance: VOXELOTOR
     Indication: Sickle cell disease
     Dosage: I TAKE 3 TABLETS DAILY OF 500 MILLIGRAMS
     Dates: start: 20240104
  2. HYDROXYUREA [Suspect]
     Active Substance: HYDROXYUREA
     Indication: Sickle cell disease
     Dosage: 1000 MG, DAILY (2 TABLETS OF 500 MILLIGRAMS DAILY)
  3. HYDROXYUREA [Suspect]
     Active Substance: HYDROXYUREA
     Dosage: LOWER HER DOSES
  4. HYDROXYUREA [Suspect]
     Active Substance: HYDROXYUREA
     Dosage: 1000 MG, DAILY (2 TABLETS OF 500 MILLIGRAMS DAILY)

REACTIONS (6)
  - Sickle cell anaemia with crisis [Recovered/Resolved]
  - Pain [Recovered/Resolved]
  - Haemoglobin decreased [Unknown]
  - Chest pain [Recovered/Resolved]
  - Back pain [Recovered/Resolved]
  - Pneumonia [Unknown]

NARRATIVE: CASE EVENT DATE: 20240501
